FAERS Safety Report 8077078-X (Version None)
Quarter: 2011Q4

REPORT INFORMATION
  Report Type: 
  Country: None (occurrence: None)
  Receive Date: 20111221
  Receipt Date: 20110713
  Transmission Date: 20120403
  Serious: Yes (Hospitalization)
  Sender: FDA-Public Use
  Company Number: PHHY2011US63161

PATIENT
  Age: 39 Year
  Sex: Male
  Weight: 60.3 kg

DRUGS (1)
  1. EXJADE [Suspect]
     Indication: SICKLE CELL ANAEMIA
     Dosage: 1500 MG, DAILY, ORAL
     Route: 048
     Dates: start: 20061018

REACTIONS (2)
  - RENAL FAILURE [None]
  - BLOOD IRON INCREASED [None]
